FAERS Safety Report 8076509-9 (Version None)
Quarter: 2011Q4

REPORT INFORMATION
  Report Type: 
  Country: None (occurrence: None)
  Receive Date: 20111221
  Receipt Date: 20110301
  Transmission Date: 20120403
  Serious: Yes (Hospitalization)
  Sender: FDA-Public Use
  Company Number: PHHY2011US16608

PATIENT
  Sex: Female
  Weight: 64 kg

DRUGS (2)
  1. EXJADE [Suspect]
     Indication: LYMPHATIC SYSTEM NEOPLASM
     Dosage: 1250 MG, DAILY, ORAL
     Route: 048
     Dates: start: 20101001
  2. EXJADE [Suspect]
     Indication: HAEMATOPOIETIC NEOPLASM
     Dosage: 1250 MG, DAILY, ORAL
     Route: 048
     Dates: start: 20101001

REACTIONS (1)
  - IRON OVERLOAD [None]
